FAERS Safety Report 8776347 (Version 1)
Quarter: 2012Q4

REPORT INFORMATION
  Report Type: 
  Country: US (occurrence: US)
  Receive Date: 20120910
  Receipt Date: 20120910
  Transmission Date: 20130627
  Serious: Yes (Death)
  Sender: FDA-Public Use
  Company Number: US-ASTRAZENECA-2012SE70150

PATIENT
  Age: 92 Year
  Sex: Female

DRUGS (1)
  1. TOPROL XL [Suspect]
     Route: 048

REACTIONS (2)
  - Myocardial infarction [Fatal]
  - Coronary artery disease [Fatal]
